FAERS Safety Report 15902036 (Version 1)
Quarter: 2019Q1

REPORT INFORMATION
  Report Type: Spontaneous
  Country: CN (occurrence: CN)
  Receive Date: 20190201
  Receipt Date: 20190201
  Transmission Date: 20190417
  Serious: Yes (Other)
  Sender: FDA-Public Use
  Company Number: CN-PFIZER INC-2019044349

PATIENT
  Age: 76 Year
  Sex: Male
  Weight: 43.1 kg

DRUGS (8)
  1. SODIUM CHLORIDE. [Concomitant]
     Active Substance: SODIUM CHLORIDE
     Indication: DRUG THERAPY
     Dosage: 20 ML, 1X/DAY
     Route: 041
     Dates: start: 20180824, end: 20180824
  2. PREDNISONE ACETATE [Concomitant]
     Active Substance: PREDNISONE ACETATE
     Indication: LYMPHOMA
     Dosage: 35 MG, 2X/DAY
     Route: 048
     Dates: start: 20180824, end: 20180828
  3. SODIUM CHLORIDE. [Concomitant]
     Active Substance: SODIUM CHLORIDE
     Indication: LYMPHOMA
     Dosage: 100 ML, 1X/DAY
     Route: 041
     Dates: start: 20180824, end: 20180824
  4. METHOTREXATE SODIUM. [Suspect]
     Active Substance: METHOTREXATE SODIUM
     Indication: LYMPHOMA
     Dosage: 5 MG, 1X/DAY
     Route: 037
     Dates: start: 20180824, end: 20180824
  5. PHARMORUBICIN [Suspect]
     Active Substance: EPIRUBICIN
     Indication: LYMPHOMA
     Dosage: 70 MG, 1X/DAY
     Route: 041
     Dates: start: 20180824, end: 20180824
  6. VINCRISTINE SULFATE. [Suspect]
     Active Substance: VINCRISTINE SULFATE
     Indication: LYMPHOMA
     Dosage: 1.5 MG, 1X/DAY
     Route: 041
     Dates: start: 20180824, end: 20180824
  7. ENDOXAN-BAXTER [Suspect]
     Active Substance: CYCLOPHOSPHAMIDE
     Indication: LYMPHOMA
     Dosage: 0.9 G, 1X/DAY
     Route: 041
     Dates: start: 20180824, end: 20180824
  8. STERILIZED WATER [Concomitant]
     Indication: DRUG THERAPY
     Dosage: 100 ML, 1X/DAY
     Route: 041
     Dates: start: 20180824, end: 20180824

REACTIONS (1)
  - Cytopenia [Recovering/Resolving]

NARRATIVE: CASE EVENT DATE: 20180902
